FAERS Safety Report 10339999 (Version 2)
Quarter: 2014Q3

REPORT INFORMATION
  Report Type: Report from Study
  Country: BD (occurrence: BD)
  Receive Date: 20140724
  Receipt Date: 20140724
  Transmission Date: 20150326
  Serious: Yes (Other)
  Sender: FDA-Public Use
  Company Number: PHHY2013BD047130

PATIENT
  Age: 52 Year
  Sex: Male
  Weight: 67 kg

DRUGS (3)
  1. SEBIVO [Suspect]
     Active Substance: TELBIVUDINE
     Indication: HEPATITIS B
     Dosage: UNK UKN, QD
     Route: 048
     Dates: start: 20090101, end: 20120601
  2. VITAMAN [Concomitant]
     Active Substance: MINERALS\VITAMINS
     Dosage: UNK
  3. PEGASYS [Concomitant]
     Active Substance: PEGINTERFERON ALFA-2A
     Dosage: UNK (24 INJECTIONS)

REACTIONS (5)
  - Hypertension [Recovering/Resolving]
  - Asthenia [Recovering/Resolving]
  - Malaise [Unknown]
  - Hepatitis B virus test positive [Unknown]
  - Hepatic neoplasm [Unknown]
